FAERS Safety Report 7443156-9 (Version None)
Quarter: 2011Q2

REPORT INFORMATION
  Report Type: 
  Country: None (occurrence: None)
  Receive Date: 20110428
  Receipt Date: 20110405
  Transmission Date: 20111010
  Serious: Yes (Life-Threatening, Hospitalization, Other)
  Sender: FDA-Public Use
  Company Number: A0921965A

PATIENT
  Age: 93 Year
  Sex: Female

DRUGS (16)
  1. CORTICOSTEROIDS [Concomitant]
  2. ATENOLOL [Concomitant]
     Dosage: 25MG TWICE PER DAY
     Route: 048
     Dates: start: 20100913
  3. LEVOTHYROXINE SODIUM [Concomitant]
     Dosage: 125MCG PER DAY
     Route: 048
     Dates: start: 20100511
  4. SPIRONOLACTONE [Concomitant]
     Dosage: 12.5MG TWICE PER DAY
     Route: 048
     Dates: start: 20101029
  5. PREDNISONE [Concomitant]
     Dosage: 2.5MG ALTERNATE DAYS
     Dates: start: 20100129
  6. PROMACTA [Suspect]
     Indication: IDIOPATHIC THROMBOCYTOPENIC PURPURA
     Dosage: 50MG ALTERNATE DAYS
     Dates: start: 20100928, end: 20110127
  7. CALCIUM + VITAMIN D [Concomitant]
     Dosage: 1CAP TWICE PER DAY
     Route: 048
     Dates: start: 20061220
  8. MAGNESIUM [Concomitant]
     Dosage: 100MG PER DAY
     Route: 048
     Dates: start: 20061220
  9. NITROGLYCERIN [Concomitant]
     Dosage: .4MG AS DIRECTED
     Route: 060
     Dates: start: 20110103
  10. MULTI-VITAMINS [Concomitant]
     Dosage: 1CAP PER DAY
     Route: 048
     Dates: start: 20061220
  11. ACIDOPHILUS [Concomitant]
     Dosage: 1CAP PER DAY
     Route: 048
     Dates: start: 20061220
  12. K DUR [Concomitant]
     Dosage: 10MEQ PER DAY
     Route: 048
     Dates: start: 20101029
  13. LASIX [Concomitant]
     Dosage: 20MG PER DAY
     Route: 048
     Dates: start: 20101130
  14. ISOSORBIDE MONONITRATE [Concomitant]
     Dosage: 30MG IN THE MORNING
     Route: 048
  15. MIRALAX [Concomitant]
     Dosage: 17G PER DAY
     Route: 048
     Dates: start: 20100106
  16. OXYBUTYNIN CHLORIDE [Concomitant]
     Dates: start: 20101021

REACTIONS (2)
  - CEREBROVASCULAR ACCIDENT [None]
  - CARDIAC FAILURE [None]
